FAERS Safety Report 21803216 (Version 1)
Quarter: 2023Q1

REPORT INFORMATION
  Report Type: Spontaneous
  Country: US (occurrence: US)
  Receive Date: 20230101
  Receipt Date: 20230101
  Transmission Date: 20230418
  Serious: No
  Sender: FDA-Public Use
  Company Number: US-ELI_LILLY_AND_COMPANY-US202212003497

PATIENT
  Age: 75 Year
  Sex: Male

DRUGS (1)
  1. OLUMIANT [Suspect]
     Active Substance: BARICITINIB
     Indication: Ankylosing spondylitis
     Dosage: 2 MG, UNKNOWN
     Route: 065
     Dates: end: 20221203

REACTIONS (2)
  - Eye disorder [Recovering/Resolving]
  - Off label use [Unknown]
